FAERS Safety Report 24357857 (Version 1)
Quarter: 2024Q3

REPORT INFORMATION
  Report Type: Spontaneous
  Country: SK (occurrence: GB)
  Receive Date: 20240924
  Receipt Date: 20240924
  Transmission Date: 20241017
  Serious: Yes (Death, Other)
  Sender: FRESENIUS KABI
  Company Number: GB-GSKCCFEMEA-Case-01140699_AE-40315

PATIENT
  Sex: Female

DRUGS (99)
  1. ONDANSETRON HYDROCHLORIDE [Suspect]
     Active Substance: ONDANSETRON HYDROCHLORIDE
     Indication: Product used for unknown indication
     Dosage: UNK
     Route: 065
  2. ONDANSETRON HYDROCHLORIDE [Suspect]
     Active Substance: ONDANSETRON HYDROCHLORIDE
     Dosage: UNK; UNKNOWN?FOA-ORODISPERSIBLE FILM
     Route: 065
  3. ONDANSETRON HYDROCHLORIDE [Suspect]
     Active Substance: ONDANSETRON HYDROCHLORIDE
     Dosage: UNK?FOA-ORODISPERSIBLE FILM
     Route: 065
  4. ONDANSETRON HYDROCHLORIDE [Suspect]
     Active Substance: ONDANSETRON HYDROCHLORIDE
     Dosage: UNK?FOA-ORODISPERSIBLE FILM
     Route: 065
  5. CIPROFLOXACIN HYDROCHLORIDE [Suspect]
     Active Substance: CIPROFLOXACIN HYDROCHLORIDE
     Indication: Product used for unknown indication
     Dosage: UNK?FOA-MODIFIED-RELEASE TABLET
     Route: 065
  6. CIPROFLOXACIN HYDROCHLORIDE [Suspect]
     Active Substance: CIPROFLOXACIN HYDROCHLORIDE
     Dosage: UNK
     Route: 065
  7. CIPROFLOXACIN HYDROCHLORIDE [Suspect]
     Active Substance: CIPROFLOXACIN HYDROCHLORIDE
     Dosage: UNK?FOA-MODIFIED-RELEASE TABLET
     Route: 065
  8. CIPROFLOXACIN HYDROCHLORIDE [Suspect]
     Active Substance: CIPROFLOXACIN HYDROCHLORIDE
     Dosage: UNK (MODIFIED-RELEASE TABLET?FOA-MODIFIED-RELEASE TABLET
     Route: 065
  9. CIPROFLOXACIN HYDROCHLORIDE [Suspect]
     Active Substance: CIPROFLOXACIN HYDROCHLORIDE
     Dosage: UNK
     Route: 065
  10. CIPROFLOXACIN HYDROCHLORIDE [Suspect]
     Active Substance: CIPROFLOXACIN HYDROCHLORIDE
     Dosage: UNK?FOA-SOLUTION FOR INFUSION
     Route: 065
  11. CIPROFLOXACIN HYDROCHLORIDE [Suspect]
     Active Substance: CIPROFLOXACIN HYDROCHLORIDE
     Dosage: UNK?FOA-MODIFIED-RELEASE TABLET
     Route: 065
  12. CIPROFLOXACIN HYDROCHLORIDE [Suspect]
     Active Substance: CIPROFLOXACIN HYDROCHLORIDE
     Dosage: UNK
     Route: 065
  13. CIPROFLOXACIN HYDROCHLORIDE [Suspect]
     Active Substance: CIPROFLOXACIN HYDROCHLORIDE
     Dosage: UNK?FOA-MODIFIED-RELEASE TABLET
     Route: 065
  14. CIPROFLOXACIN HYDROCHLORIDE [Suspect]
     Active Substance: CIPROFLOXACIN HYDROCHLORIDE
     Dosage: UNK?FOA-MODIFIED-RELEASE TABLET
     Route: 065
  15. CIPROFLOXACIN HYDROCHLORIDE [Suspect]
     Active Substance: CIPROFLOXACIN HYDROCHLORIDE
     Dosage: UNK?FOA-INJECTION
     Route: 065
  16. ALBUTEROL [Suspect]
     Active Substance: ALBUTEROL
     Indication: Product used for unknown indication
     Dosage: UNK?FOA-INHALATION POWDER
     Route: 065
  17. ALBUTEROL [Suspect]
     Active Substance: ALBUTEROL
     Dosage: UNK; 100 MCG?FOA-INHALATION POWDER
     Route: 065
  18. ALBUTEROL [Suspect]
     Active Substance: ALBUTEROL
     Dosage: UNK?FOA-INHALATION POWDER
     Route: 065
  19. ALBUTEROL [Suspect]
     Active Substance: ALBUTEROL
     Dosage: UNK?FOA-INHALATION POWDER
     Route: 055
  20. ALBUTEROL [Suspect]
     Active Substance: ALBUTEROL
     Dosage: 100 MCG, UNK?FOA-INHALATION POWDER
     Route: 065
  21. ALBUTEROL [Suspect]
     Active Substance: ALBUTEROL
     Dosage: 100 MICROGRAM (100 MCG)?FOA-INHALATION POWDER
     Route: 055
  22. ALBUTEROL [Suspect]
     Active Substance: ALBUTEROL
     Dosage: 2 DF (2 PUFFS) (AEROSOL INHALATION) [2 PUFF(S), 25 MCG (DRY POWDER INHALER DEVICE INHALER)?FOA-INHAL
     Route: 055
  23. ALBUTEROL [Suspect]
     Active Substance: ALBUTEROL
     Dosage: 25MG, POWDER AND SOLVENT FOR ENDOSINUSIAL SOLUTION?FOA-INHALATION POWDER
     Route: 055
  24. ALBUTEROL [Suspect]
     Active Substance: ALBUTEROL
     Dosage: 25MG, POWDER AND SOLVENT FOR ENDOSINUSIAL SOLUTION?FOA-INHALATION POWDER
     Route: 055
  25. SALMETEROL XINAFOATE [Suspect]
     Active Substance: SALMETEROL XINAFOATE
     Indication: Product used for unknown indication
     Dosage: 25 MCG; DRY POWDER INHALER DEVICE INHALER; 2 PUFF(S)?FOA-POWDER AND SOLVENT FOR ENDOSINUSIAL SOLUTIO
     Route: 055
  26. SALMETEROL XINAFOATE [Suspect]
     Active Substance: SALMETEROL XINAFOATE
     Dosage: 2 PUFF(S)
     Route: 055
  27. SALMETEROL XINAFOATE [Suspect]
     Active Substance: SALMETEROL XINAFOATE
     Dosage: 100 MCG; INHALATION POWDER?FOA-INHALATION POWDER
     Route: 055
  28. SALMETEROL XINAFOATE [Suspect]
     Active Substance: SALMETEROL XINAFOATE
     Dosage: 25 MCG (DRY POWDER INHALER DEVICE INHALER)?FOA-INHALATION POWDER
     Route: 055
  29. SALMETEROL XINAFOATE [Suspect]
     Active Substance: SALMETEROL XINAFOATE
     Dosage: 2 DF (2 PUFFS) (AEROSOL INHALATION) [2 PUFF(S), 25 MCG (DRY POWDER INHALER DEVICE INHALER)?FOA-INHAL
     Route: 055
  30. SALMETEROL XINAFOATE [Suspect]
     Active Substance: SALMETEROL XINAFOATE
     Dosage: 2 PUFF(S); 2 DF (2 PUFFS) (AEROSOL INHALATION)?FOA-INHALATION POWDER
     Route: 055
  31. SALMETEROL XINAFOATE [Suspect]
     Active Substance: SALMETEROL XINAFOATE
     Dosage: 2 DF ( 2 PUFFS) (AEROSOL INHALATION) [2 PUFF(S), 25 MCG (DRY POWDER INHALER DEVICE INHALER)?FOA-POWD
     Route: 055
  32. SALMETEROL XINAFOATE [Suspect]
     Active Substance: SALMETEROL XINAFOATE
     Dosage: 2 PUFF(S), 25MCG?FOA-INHALATION POWDER
     Route: 055
  33. SALMETEROL XINAFOATE [Suspect]
     Active Substance: SALMETEROL XINAFOATE
     Dosage: 100 MICROGRAM?FOA-INHALATION POWDER
     Route: 055
  34. SALMETEROL XINAFOATE [Suspect]
     Active Substance: SALMETEROL XINAFOATE
     Dosage: 25 MICROGRAM, POWDER AND SOLVENT FOR ENDOSINUSIAL SOLUTION?FOA-INHALATION POWDER
     Route: 055
  35. SALMETEROL XINAFOATE [Suspect]
     Active Substance: SALMETEROL XINAFOATE
     Dosage: 2 DOSAGE FORM,2 PUFF(S)?FOA-INHALATION POWDER
     Route: 055
  36. SALMETEROL XINAFOATE [Suspect]
     Active Substance: SALMETEROL XINAFOATE
     Dosage: 25 MICROGRAM 2 PUFF(S)?FOA-INHALATION POWDER
     Route: 055
  37. SALMETEROL XINAFOATE [Suspect]
     Active Substance: SALMETEROL XINAFOATE
     Dosage: 2 PUFF(S)?FOA-INHALATION POWDER
     Route: 055
  38. SALMETEROL XINAFOATE [Suspect]
     Active Substance: SALMETEROL XINAFOATE
     Dosage: 100 MCG?FOA-INHALATION POWDER
     Route: 055
  39. ENOXAPARIN SODIUM [Suspect]
     Active Substance: ENOXAPARIN SODIUM
     Indication: Product used for unknown indication
     Dosage: UNK
     Route: 065
  40. ALBUTEROL [Suspect]
     Active Substance: ALBUTEROL
     Indication: Product used for unknown indication
     Dosage: 100 MCG/ UNK?SALBUTAMOL/ SALBUTAMOL SULFATE
     Route: 065
  41. ALBUTEROL [Suspect]
     Active Substance: ALBUTEROL
     Dosage: UNK
     Route: 065
  42. ALBUTEROL [Suspect]
     Active Substance: ALBUTEROL
     Dosage: 100 MICROGRAM
     Route: 065
  43. SALMETEROL XINAFOATE [Suspect]
     Active Substance: SALMETEROL XINAFOATE
     Indication: Product used for unknown indication
     Dosage: 25MG, POWDER AND SOLVENT FOR ENDOSINUSIAL SOLUTION?FOA-INHALATION POWDER
     Route: 055
  44. SALMETEROL XINAFOATE [Suspect]
     Active Substance: SALMETEROL XINAFOATE
     Dosage: 2 DF (2 PUFFS) (AEROSOL INHALATION) [2 PUFF(S), 25 MCG (DRY POWDER INHALER DEVICE INHALER)?FOA-INHAL
     Route: 055
  45. SALMETEROL XINAFOATE [Suspect]
     Active Substance: SALMETEROL XINAFOATE
     Dosage: 2 PUFF(S) (2 PUFF)?FOA-INHALATION POWDER
     Route: 055
  46. SALMETEROL XINAFOATE [Suspect]
     Active Substance: SALMETEROL XINAFOATE
     Dosage: 2 DOSAGE FORM, 2 DF, UNK (2 PUFFS)(AEROSOL INHALATION)
     Route: 055
  47. SALMETEROL XINAFOATE [Suspect]
     Active Substance: SALMETEROL XINAFOATE
     Dosage: 100 MCG?FOA-INHALATION POWDER
     Route: 055
  48. SALMETEROL XINAFOATE [Suspect]
     Active Substance: SALMETEROL XINAFOATE
     Dosage: UNK (DISKUS DRY POWDER INHALER DEVICE )
     Route: 065
  49. SALMETEROL XINAFOATE [Suspect]
     Active Substance: SALMETEROL XINAFOATE
     Route: 065
  50. SALMETEROL XINAFOATE [Suspect]
     Active Substance: SALMETEROL XINAFOATE
     Dosage: 100 MCG, UNK
     Route: 055
  51. SALMETEROL XINAFOATE [Suspect]
     Active Substance: SALMETEROL XINAFOATE
     Route: 065
  52. SALMETEROL XINAFOATE [Suspect]
     Active Substance: SALMETEROL XINAFOATE
     Dosage: 100 MCG, UNK
     Route: 065
  53. SALMETEROL XINAFOATE [Suspect]
     Active Substance: SALMETEROL XINAFOATE
     Route: 065
  54. SALMETEROL XINAFOATE [Suspect]
     Active Substance: SALMETEROL XINAFOATE
     Route: 065
  55. SALMETEROL XINAFOATE [Suspect]
     Active Substance: SALMETEROL XINAFOATE
     Dosage: 100 MCG, UNK
     Route: 065
  56. SALMETEROL XINAFOATE [Suspect]
     Active Substance: SALMETEROL XINAFOATE
     Route: 065
  57. SALMETEROL XINAFOATE [Suspect]
     Active Substance: SALMETEROL XINAFOATE
     Route: 065
  58. SALMETEROL XINAFOATE [Suspect]
     Active Substance: SALMETEROL XINAFOATE
     Dosage: 100 MCG, UNK
     Route: 055
  59. SALMETEROL XINAFOATE [Suspect]
     Active Substance: SALMETEROL XINAFOATE
     Route: 065
  60. SALMETEROL XINAFOATE [Suspect]
     Active Substance: SALMETEROL XINAFOATE
     Dosage: 100 MCG, UNK
     Route: 055
  61. SALMETEROL XINAFOATE [Suspect]
     Active Substance: SALMETEROL XINAFOATE
     Dosage: 100 MCG, UNK
     Route: 055
  62. SALMETEROL XINAFOATE [Suspect]
     Active Substance: SALMETEROL XINAFOATE
     Dosage: 25 MCG, UNK
     Route: 055
  63. SALMETEROL XINAFOATE [Suspect]
     Active Substance: SALMETEROL XINAFOATE
     Dosage: 25 MCG, UNK
     Route: 055
  64. SALMETEROL XINAFOATE [Suspect]
     Active Substance: SALMETEROL XINAFOATE
     Dosage: 25 MCG, UNK
     Route: 055
  65. SALMETEROL XINAFOATE [Suspect]
     Active Substance: SALMETEROL XINAFOATE
     Route: 065
  66. SALMETEROL XINAFOATE [Suspect]
     Active Substance: SALMETEROL XINAFOATE
     Route: 065
  67. SALMETEROL XINAFOATE [Suspect]
     Active Substance: SALMETEROL XINAFOATE
     Dosage: 25 MCG, UNK
     Route: 055
  68. SALMETEROL XINAFOATE [Suspect]
     Active Substance: SALMETEROL XINAFOATE
     Dosage: 2 DF, UNK
     Route: 055
  69. SALMETEROL XINAFOATE [Suspect]
     Active Substance: SALMETEROL XINAFOATE
     Dosage: 25 MCG, UNK
     Route: 055
  70. SALMETEROL XINAFOATE [Suspect]
     Active Substance: SALMETEROL XINAFOATE
     Dosage: 25 MCG, UNK
     Route: 055
  71. SALMETEROL XINAFOATE [Suspect]
     Active Substance: SALMETEROL XINAFOATE
     Route: 065
  72. SALMETEROL XINAFOATE [Suspect]
     Active Substance: SALMETEROL XINAFOATE
     Dosage: 2 DF, UNK
     Route: 055
  73. SALMETEROL XINAFOATE [Suspect]
     Active Substance: SALMETEROL XINAFOATE
     Route: 055
  74. SALMETEROL XINAFOATE [Suspect]
     Active Substance: SALMETEROL XINAFOATE
     Dosage: 2 DF (2 PUFFS) (AEROSOL INHALATION) (2 PUFF(S), 25 MCG (DRY POWDER INHALER DEVICE INHALER)?FOA-POWDE
     Route: 055
  75. SALMETEROL XINAFOATE [Suspect]
     Active Substance: SALMETEROL XINAFOATE
     Dosage: 2 DF (2 PUFFS)?FOA-POWDER AND SOLVENT FOR ENDOSINUSIAL SOLUTION
     Route: 055
  76. SALMETEROL XINAFOATE [Suspect]
     Active Substance: SALMETEROL XINAFOATE
     Dosage: 2 DOSAGE FORM (2 DF (2 PUFFS) (AEROSOL INHALATION)?FOA-INHALATION POWDER
     Route: 055
  77. SALMETEROL XINAFOATE [Suspect]
     Active Substance: SALMETEROL XINAFOATE
     Dosage: 2 DOSAGE FORM (2 DF (2 PUFFS) (AEROSOL INHALATION)?FOA-INHALATION POWDER
     Route: 055
  78. SALMETEROL XINAFOATE [Suspect]
     Active Substance: SALMETEROL XINAFOATE
     Dosage: 2 DF (2 PUFFS) (AEROSOL INHALATION) [2 PUFF(S), 25 MCG (DRYPOWDER INHALER DEVICE INHALER)?FOA-INHALA
     Route: 055
  79. SALMETEROL XINAFOATE [Suspect]
     Active Substance: SALMETEROL XINAFOATE
     Dosage: 2DF (25 MCG (DRY POWDER INHALER DEVICE INHALER))?FOA-INHALATION POWDER
     Route: 055
  80. SALMETEROL XINAFOATE [Suspect]
     Active Substance: SALMETEROL XINAFOATE
     Dosage: 2 DOSAGE FORM (2 DF (2 PUFFS) (AEROSOL INHALATION)?FOA-INHALATION POWDER
     Route: 055
  81. SALMETEROL XINAFOATE [Suspect]
     Active Substance: SALMETEROL XINAFOATE
     Dosage: 100 MICROGRAM?FOA-INHALATION POWDER
     Route: 055
  82. SALMETEROL XINAFOATE [Suspect]
     Active Substance: SALMETEROL XINAFOATE
     Dosage: 25 MICROGRAM(POWDER AND SOLVENT FOR ENDOSINUSIAL SOLUTION)?FOA-INHALATION POWDER
     Route: 055
  83. SALMETEROL XINAFOATE [Suspect]
     Active Substance: SALMETEROL XINAFOATE
     Dosage: 100 MICROGRAM?FOA-INHALATION POWDER
     Route: 055
  84. SALMETEROL XINAFOATE [Suspect]
     Active Substance: SALMETEROL XINAFOATE
     Dosage: 25 MICROGRAM (2 PUFF(S))?FOA-INHALATION POWDER
     Route: 055
  85. CIPROFLOXACIN LACTATE [Suspect]
     Active Substance: CIPROFLOXACIN LACTATE
     Indication: Product used for unknown indication
     Dosage: UNK?FOA-MODIFIED-RELEASE TABLET
     Route: 065
  86. CIPROFLOXACIN LACTATE [Suspect]
     Active Substance: CIPROFLOXACIN LACTATE
     Dosage: UNK?FOA-SOLUTION FOR INFUSION
     Route: 065
  87. CIPROFLOXACIN LACTATE [Suspect]
     Active Substance: CIPROFLOXACIN LACTATE
     Dosage: UNK
     Route: 065
  88. CIPROFLOXACIN LACTATE [Suspect]
     Active Substance: CIPROFLOXACIN LACTATE
     Dosage: 2 DOSAGE FORM, 2 DF (2 PUFFS) (AEROSOL INHALATION) [2 PUFF(S), 25 MCG (DRYPOWDER INHALER DEVICE INHA
     Route: 055
  89. ENOXAPARIN [Suspect]
     Active Substance: ENOXAPARIN
     Indication: Product used for unknown indication
     Dosage: UNK
     Route: 065
  90. ALBUTEROL [Suspect]
     Active Substance: ALBUTEROL
     Indication: Product used for unknown indication
     Dosage: 100 MCG, UNK?SALBUTAMOL SULFATE?FOA-INHALATION POWDER
     Route: 065
  91. ALBUTEROL [Suspect]
     Active Substance: ALBUTEROL
     Dosage: UNK?FOA-INHALATION POWDER
     Route: 065
  92. ALBUTEROL [Suspect]
     Active Substance: ALBUTEROL
     Dosage: FOA-INHALATION POWDER
     Route: 065
  93. ALBUTEROL [Suspect]
     Active Substance: ALBUTEROL
     Dosage: UNK?FOA-INHALATION POWDER
     Route: 065
  94. ALBUTEROL [Suspect]
     Active Substance: ALBUTEROL
     Dosage: UNK?FOA-INHALATION POWDER
     Route: 065
  95. ALBUTEROL [Suspect]
     Active Substance: ALBUTEROL
     Dosage: UNK?FOA-INHALATION POWDER
     Route: 065
  96. ALBUTEROL [Suspect]
     Active Substance: ALBUTEROL
     Dosage: UNK?FOA-INHALATION POWDER
     Route: 065
  97. CIPROFLOXACIN HYDROCHLORIDE [Suspect]
     Active Substance: CIPROFLOXACIN HYDROCHLORIDE
     Indication: Product used for unknown indication
     Dosage: UNK
     Route: 065
  98. SALMETEROL [Suspect]
     Active Substance: SALMETEROL
     Indication: Product used for unknown indication
     Dosage: UNK MCG (DISKUS DRY POWDER INHALER DEVICE)?ROA-RESPIRATORY (INHALATION)
     Route: 055
  99. CIPROFLOXACIN [Suspect]
     Active Substance: CIPROFLOXACIN
     Indication: Product used for unknown indication
     Dosage: UNK?CIPROFLOXACIN ACETATE
     Route: 065

REACTIONS (2)
  - Death [Fatal]
  - Dysphonia [Fatal]
